FAERS Safety Report 9376522 (Version 2)
Quarter: 2013Q3

REPORT INFORMATION
  Report Type: Spontaneous
  Country: US (occurrence: US)
  Receive Date: 20130701
  Receipt Date: 20130724
  Transmission Date: 20140515
  Serious: No
  Sender: FDA-Public Use
  Company Number: US-PFIZER INC-2013193226

PATIENT
  Age: 49 Year
  Sex: Female

DRUGS (10)
  1. GABAPENTIN [Suspect]
     Dosage: UNK
     Route: 048
  2. METFORMIN HYDROCHLORIDE [Concomitant]
     Dosage: 1 DF, 1X/DAY
     Route: 048
  3. KLOR-CON 10 [Concomitant]
     Dosage: 1 DF, 1X/DAY
     Route: 048
  4. KOMBIGLYZE XR [Concomitant]
     Dosage: 1 DF, 1X/DAY
     Route: 048
  5. NORTRIPTYLINE HYDROCHLORIDE [Concomitant]
     Indication: NEURALGIA
     Dosage: 1 DF, UNK
     Route: 048
  6. BENICAR HCT [Concomitant]
     Dosage: 1 DF, 1X/DAY
     Route: 048
  7. TRAMADOL HYDROCHLORIDE [Concomitant]
     Dosage: 1 DF, AS NEEDED
     Route: 048
  8. TRAZODONE HYDROCHLORIDE [Concomitant]
     Dosage: 1/2 TABLET AT BEDTIME ONCE A DAY
  9. FLUOXETINE HYDROCHLORIDE [Concomitant]
  10. LYRICA [Concomitant]
     Indication: NEUROPATHY PERIPHERAL
     Dosage: 1 DF, UNK

REACTIONS (2)
  - Drug hypersensitivity [Unknown]
  - Paraesthesia oral [Unknown]
